FAERS Safety Report 4755478-0 (Version None)
Quarter: 2005Q3

REPORT INFORMATION
  Report Type: 
  Country: None (occurrence: None)
  Receive Date: 20050829
  Receipt Date: 20050815
  Transmission Date: 20060218
  Serious: Yes (Other)
  Sender: FDA-Public Use
  Company Number: 2005116069

PATIENT
  Sex: Male
  Weight: 73.4827 kg

DRUGS (1)
  1. LISTERINE ANTISEPTIC MOUTHWASH (MENTHOL, METHYL SALICYLATE, EUCALYPTOL [Suspect]
     Dosage: DOSE UNSPECIFIED, ORAL
     Route: 048

REACTIONS (1)
  - STENT PLACEMENT [None]
